FAERS Safety Report 14689361 (Version 1)
Quarter: 2018Q1

REPORT INFORMATION
  Report Type: Spontaneous
  Country: CA (occurrence: CA)
  Receive Date: 20180328
  Receipt Date: 20180328
  Transmission Date: 20180509
  Serious: Yes (Hospitalization, Other)
  Sender: FDA-Public Use
  Company Number: CA-009507513-1803CAN011616

PATIENT
  Age: 68 Year
  Sex: Female
  Weight: 41.72 kg

DRUGS (1)
  1. DESLORATADINE. [Suspect]
     Active Substance: DESLORATADINE
     Indication: SEASONAL ALLERGY
     Dosage: UNK, ONCE
     Route: 048

REACTIONS (12)
  - Asthenia [Recovering/Resolving]
  - Tinnitus [Unknown]
  - Head discomfort [Recovering/Resolving]
  - Palpitations [Recovering/Resolving]
  - Headache [Recovering/Resolving]
  - Loss of personal independence in daily activities [Recovering/Resolving]
  - Nausea [Recovering/Resolving]
  - Vertigo [Unknown]
  - Weight decreased [Recovering/Resolving]
  - Dry mouth [Recovering/Resolving]
  - Decreased appetite [Recovering/Resolving]
  - Vomiting [Recovering/Resolving]
